FAERS Safety Report 10415211 (Version 1)
Quarter: 2014Q2

REPORT INFORMATION
  Report Type: Spontaneous
  Country: US (occurrence: None)
  Receive Date: 20140604
  Receipt Date: 20140604
  Transmission Date: 20141212
  Serious: Yes (Hospitalization)
  Sender: FDA-Public Use
  Company Number: 20120131CINRY2616

PATIENT
  Age: 47 Year
  Sex: Female

DRUGS (6)
  1. CINRYZE [Suspect]
     Indication: HEREDITARY ANGIOEDEMA
     Dosage: UNKNOWN (1 IN 2 D)?01/13/2012 - CONTINUED
     Dates: start: 20120113
  2. CINRYZE [Suspect]
     Indication: PROPHYLAXIS
     Dosage: UNKNOWN (1 IN 2 D)?01/13/2012 - CONTINUED
     Dates: start: 20120113
  3. KALBITOR [Suspect]
     Indication: HEREDITARY ANGIOEDEMA
     Dosage: 03/ /2010 - UNKNOWN
     Dates: start: 201003
  4. ATENOLOL [Concomitant]
  5. METFORMIN [Concomitant]
  6. MIRAPEX (PRAMIPEXOLE) [Concomitant]

REACTIONS (5)
  - Hereditary angioedema [None]
  - Drug ineffective [None]
  - Inappropriate schedule of drug administration [None]
  - Inappropriate schedule of drug administration [None]
  - Gastrointestinal disorder [None]
